FAERS Safety Report 11663325 (Version 1)
Quarter: 2015Q4

REPORT INFORMATION
  Report Type: Spontaneous
  Country: US (occurrence: US)
  Receive Date: 20151027
  Receipt Date: 20151027
  Transmission Date: 20160304
  Serious: Yes (Hospitalization, Other)
  Sender: FDA-Public Use
  Company Number: US-BAYER-2015-447220

PATIENT
  Age: 22 Year
  Sex: Female

DRUGS (1)
  1. MIRENA [Suspect]
     Active Substance: LEVONORGESTREL
     Dosage: 20 MCG/24HR, CONT
     Route: 015

REACTIONS (15)
  - Weight increased [None]
  - Schizophrenia, paranoid type [None]
  - Embedded device [None]
  - Vaginal discharge [None]
  - Rash [None]
  - Nausea [None]
  - Bipolar disorder [None]
  - Restlessness [None]
  - Sepsis [None]
  - Dyspareunia [None]
  - Alopecia [None]
  - Fatigue [None]
  - Anger [None]
  - Breast pain [None]
  - Agitation [None]

NARRATIVE: CASE EVENT DATE: 20151015
